FAERS Safety Report 5672830-X (Version None)
Quarter: 2008Q1

REPORT INFORMATION
  Report Type: 
  Country: None (occurrence: None)
  Receive Date: 20080319
  Receipt Date: 20080305
  Transmission Date: 20080703
  Serious: Yes (Death, Hospitalization)
  Sender: FDA-Public Use
  Company Number: A0624805A

PATIENT
  Age: 17 Year
  Sex: Male
  Weight: 88.2 kg

DRUGS (9)
  1. PAXIL CR [Suspect]
     Indication: DEPRESSION
     Dosage: 37.5MG PER DAY
     Route: 048
     Dates: start: 20031216, end: 20041019
  2. ATIVAN [Concomitant]
  3. BUSPAR [Concomitant]
     Dates: start: 20041015
  4. NASONEX [Concomitant]
  5. ALLEGRA D 24 HOUR [Concomitant]
  6. KLONOPIN [Concomitant]
  7. ALCOHOL [Concomitant]
  8. MARIJUANA [Concomitant]
  9. XANAX [Concomitant]
     Indication: ANXIETY
     Dates: start: 20040901

REACTIONS (18)
  - AGITATION [None]
  - ANOXIA [None]
  - ANXIETY [None]
  - APATHY [None]
  - ASTHENIA [None]
  - CARDIAC ARREST [None]
  - CARDIO-RESPIRATORY ARREST [None]
  - COMPLETED SUICIDE [None]
  - CRYING [None]
  - DECREASED APPETITE [None]
  - DEPRESSION [None]
  - DISTURBANCE IN ATTENTION [None]
  - DYSPNOEA [None]
  - FEELING OF DESPAIR [None]
  - INSOMNIA [None]
  - MEMORY IMPAIRMENT [None]
  - POOR QUALITY SLEEP [None]
  - SUICIDAL IDEATION [None]
